FAERS Safety Report 4337135-8 (Version None)
Quarter: 2004Q1

REPORT INFORMATION
  Report Type: 
  Country: None (occurrence: None)
  Receive Date: 20040329
  Receipt Date: 20040202
  Transmission Date: 20041129
  Serious: No
  Sender: FDA-Public Use
  Company Number: USA040258265

PATIENT
  Age: 28 Year
  Sex: Female

DRUGS (6)
  1. STRATTERA [Suspect]
     Indication: ATTENTION DEFICIT/HYPERACTIVITY DISORDER
     Dosage: 60 MG/DAY
     Dates: start: 20040129
  2. IBUPROFEN [Concomitant]
  3. OMEPRAZOLE [Concomitant]
  4. CITRUCEL (METHYLCELLULOSE) [Concomitant]
  5. LO/OVRAL [Concomitant]
  6. MULTIVITAMINS NOS (MULTIVITAMIN NOS) [Concomitant]

REACTIONS (7)
  - CHILLS [None]
  - CONSTIPATION [None]
  - FEELING ABNORMAL [None]
  - FEELING HOT [None]
  - HEADACHE [None]
  - HEARING IMPAIRED [None]
  - HYPERHIDROSIS [None]
